FAERS Safety Report 5658598-1 (Version None)
Quarter: 2008Q1

REPORT INFORMATION
  Report Type: 
  Country: None (occurrence: None)
  Receive Date: 20080310
  Receipt Date: 20070524
  Transmission Date: 20080703
  Serious: Yes (Other)
  Sender: FDA-Public Use
  Company Number: US-BAYER-200710759BCC

PATIENT
  Age: 70 Year
  Sex: Female
  Weight: 55 kg

DRUGS (11)
  1. ALEVE [Suspect]
     Indication: ARTHRITIS
     Dosage: UNIT DOSE: 220 MG
     Route: 048
  2. FOSAMAX [Concomitant]
  3. ALLEGRA [Concomitant]
  4. CENTRUM SILVER [Concomitant]
  5. ANTIVERT [Concomitant]
  6. ZANTAC [Concomitant]
  7. DECONGESTANTS [Concomitant]
  8. TUMS [Concomitant]
  9. EQUANIL [Concomitant]
  10. BACTRIM DS [Concomitant]
  11. OPTIPRANOLOL [Concomitant]

REACTIONS (4)
  - HEPATOCELLULAR INJURY [None]
  - NAUSEA [None]
  - SINUS CONGESTION [None]
  - VOMITING [None]
